FAERS Safety Report 4538635-8 (Version None)
Quarter: 2004Q4

REPORT INFORMATION
  Report Type: 
  Country: None (occurrence: None)
  Receive Date: 20041227
  Receipt Date: 20041217
  Transmission Date: 20050328
  Serious: Yes (Death)
  Sender: FDA-Public Use
  Company Number: FR-JNJFOC-20041103641

PATIENT
  Sex: Female

DRUGS (8)
  1. PROPULSID [Suspect]
     Route: 049
     Dates: start: 20040807
  2. INSULIN [Concomitant]
     Route: 058
  3. SEGLOR [Concomitant]
     Route: 049
  4. KCI [Concomitant]
     Dosage: 6SACHET, LONGTERM
     Route: 049
  5. CORDARONE [Concomitant]
     Indication: CARDIOMYOPATHY
     Dosage: 1/2(100MG)
     Route: 049
  6. DIGOXIN [Concomitant]
     Indication: CARDIOMYOPATHY
     Route: 049
  7. EUPANTOL [Concomitant]
     Indication: CARDIOMYOPATHY
     Route: 049
  8. KARDEGIC [Concomitant]
     Indication: CARDIOMYOPATHY
     Route: 049

REACTIONS (1)
  - DEATH [None]
